FAERS Safety Report 4772412-8 (Version None)
Quarter: 2005Q3

REPORT INFORMATION
  Report Type: 
  Country: None (occurrence: None)
  Receive Date: 20050919
  Receipt Date: 20050907
  Transmission Date: 20060218
  Serious: Yes (Hospitalization)
  Sender: FDA-Public Use
  Company Number: US-JNJFOC-20050902056

PATIENT
  Sex: Male

DRUGS (8)
  1. REMICADE [Suspect]
     Dosage: 3 VIALS  4TH INFUSION
     Route: 042
  2. REMICADE [Suspect]
     Route: 042
  3. REMICADE [Suspect]
     Route: 042
  4. REMICADE [Suspect]
     Indication: RHEUMATOID ARTHRITIS
     Route: 042
  5. PREDNISONE [Concomitant]
     Indication: RHEUMATOID ARTHRITIS
  6. METHOTREXATE [Concomitant]
  7. METHOTREXATE [Concomitant]
     Indication: RHEUMATOID ARTHRITIS
  8. 5 ASA [Concomitant]

REACTIONS (2)
  - JOINT STIFFNESS [None]
  - KNEE ARTHROPLASTY [None]
